FAERS Safety Report 9842922 (Version 1)
Quarter: 2014Q1

REPORT INFORMATION
  Report Type: Spontaneous
  Country: CA (occurrence: CA)
  Receive Date: 20140124
  Receipt Date: 20140124
  Transmission Date: 20141002
  Serious: Yes (Congenital Anomaly, Other)
  Sender: FDA-Public Use
  Company Number: CA-ASTRAZENECA-2014SE03888

PATIENT
  Sex: 0

DRUGS (2)
  1. SYMBICORT TURBUHALER [Suspect]
     Route: 015
  2. REMICADE [Suspect]
     Route: 015

REACTIONS (1)
  - Trisomy 21 [Unknown]
